FAERS Safety Report 14658743 (Version 5)
Quarter: 2019Q1

REPORT INFORMATION
  Report Type: Spontaneous
  Country: PT (occurrence: PT)
  Receive Date: 20180320
  Receipt Date: 20190319
  Transmission Date: 20190417
  Serious: Yes (Hospitalization)
  Sender: FDA-Public Use
  Company Number: PT-MYLANLABS-2018M1018143

PATIENT
  Age: 67 Year
  Sex: Male

DRUGS (1)
  1. METFORMIN [Suspect]
     Active Substance: METFORMIN HYDROCHLORIDE
     Indication: DIABETES MELLITUS
     Dosage: 3000 (UNSPECIFIED UNITS) PER DAY
     Route: 065

REACTIONS (3)
  - Inflammatory myofibroblastic tumour [Unknown]
  - Lactic acidosis [Recovering/Resolving]
  - Syncope [Unknown]
